FAERS Safety Report 7505146-7 (Version None)
Quarter: 2011Q2

REPORT INFORMATION
  Report Type: 
  Country: None (occurrence: None)
  Receive Date: 20110526
  Receipt Date: 20110511
  Transmission Date: 20111010
  Serious: Yes (Other)
  Sender: FDA-Public Use
  Company Number: US-BAYER-201041778NA

PATIENT
  Age: 44 Year
  Sex: Female
  Weight: 56.689 kg

DRUGS (8)
  1. CLONAZEPAM [Concomitant]
  2. INOSITOL [Concomitant]
  3. YAZ [Suspect]
     Indication: PREMENSTRUAL SYNDROME
  4. CALCIUM CARBONATE [Concomitant]
  5. YAZ [Suspect]
     Indication: CONTRACEPTION
     Dosage: UNK UNK, UNK
     Route: 048
     Dates: start: 20060101, end: 20070501
  6. VITAMIN B COMPLEX CAP [Concomitant]
  7. YAZ [Suspect]
     Indication: MENORRHAGIA
  8. CENTRUM [Concomitant]

REACTIONS (4)
  - CHOLECYSTITIS CHRONIC [None]
  - PAIN [None]
  - BILIARY DYSKINESIA [None]
  - CHOLECYSTECTOMY [None]
